FAERS Safety Report 11109205 (Version 3)
Quarter: 2015Q3

REPORT INFORMATION
  Report Type: Spontaneous
  Country: US (occurrence: US)
  Receive Date: 20150513
  Receipt Date: 20150812
  Transmission Date: 20151125
  Serious: Yes (Hospitalization, Disabling, Other)
  Sender: FDA-Public Use
  Company Number: US-009507513-1505USA004572

PATIENT
  Sex: Female
  Weight: 58.5 kg

DRUGS (5)
  1. FOSAMAX [Suspect]
     Active Substance: ALENDRONATE SODIUM
     Indication: OSTEOPOROSIS
     Dosage: 35 MG, QW
     Dates: start: 200404, end: 200408
  2. FOSAMAX [Suspect]
     Active Substance: ALENDRONATE SODIUM
     Indication: OSTEOPENIA
     Dosage: 70 MG, QW
     Route: 048
     Dates: start: 200409, end: 200803
  3. ALENDRONATE SODIUM. [Suspect]
     Active Substance: ALENDRONATE SODIUM
     Indication: OSTEOPENIA
     Dosage: 70 MG, QW
     Route: 048
     Dates: start: 200811, end: 200902
  4. ALENDRONATE SODIUM. [Suspect]
     Active Substance: ALENDRONATE SODIUM
     Indication: OSTEOPENIA
     Dosage: 70 MG, QW
     Route: 048
     Dates: start: 200803, end: 200811
  5. ALENDRONATE SODIUM. [Suspect]
     Active Substance: ALENDRONATE SODIUM
     Dosage: 70 MG, QW
     Route: 048
     Dates: start: 200902, end: 201401

REACTIONS (14)
  - Bronchitis [Unknown]
  - Basal cell carcinoma [Unknown]
  - Blood cholesterol increased [Unknown]
  - Muscle disorder [Unknown]
  - Haematoma [Unknown]
  - Drug ineffective [Unknown]
  - Deep vein thrombosis [Unknown]
  - Incorrect drug administration duration [Unknown]
  - Basal cell carcinoma [Unknown]
  - Femur fracture [Recovered/Resolved]
  - Fall [Unknown]
  - Fractured coccyx [Unknown]
  - Low turnover osteopathy [Not Recovered/Not Resolved]
  - Anaemia postoperative [Unknown]

NARRATIVE: CASE EVENT DATE: 2004
